FAERS Safety Report 9813454 (Version 2)
Quarter: 2014Q3

REPORT INFORMATION
  Report Type: Spontaneous
  Country: US (occurrence: US)
  Receive Date: 20140113
  Receipt Date: 20140711
  Transmission Date: 20150326
  Serious: Yes (Hospitalization, Other)
  Sender: FDA-Public Use
  Company Number: US-009507513-1401USA004076

PATIENT
  Sex: Female

DRUGS (1)
  1. NUVARING [Suspect]
     Active Substance: ETHINYL ESTRADIOL\ETONOGESTREL
     Indication: CONTRACEPTION
     Dosage: UNK
     Route: 067
     Dates: start: 200807, end: 201007

REACTIONS (12)
  - Deep vein thrombosis [Unknown]
  - Maternal exposure before pregnancy [Unknown]
  - Rheumatoid arthritis [Unknown]
  - Spinal disorder [Unknown]
  - Gestational diabetes [Unknown]
  - Pre-eclampsia [Unknown]
  - Pneumonia [Unknown]
  - Hypertension [Unknown]
  - Caesarean section [Unknown]
  - Pulmonary embolism [Unknown]
  - HELLP syndrome [Unknown]
  - Premature delivery [Unknown]

NARRATIVE: CASE EVENT DATE: 20100619
